FAERS Safety Report 6439659-6 (Version None)
Quarter: 2009Q4

REPORT INFORMATION
  Report Type: 
  Country: None (occurrence: None)
  Receive Date: 20091112
  Receipt Date: 20091112
  Transmission Date: 20100525
  Serious: Yes (Other)
  Sender: FDA-Public Use
  Company Number: None

PATIENT
  Age: 63 Year
  Sex: Female
  Weight: 90.7194 kg

DRUGS (1)
  1. CEFTIN [Suspect]
     Indication: SINUSITIS
     Dosage: ONCE DAILY PO  ONLY ONE PILL ONE TIME
     Route: 048
     Dates: start: 20000206, end: 20000206

REACTIONS (3)
  - PRURITUS [None]
  - SENSATION OF FOREIGN BODY [None]
  - SKIN REACTION [None]
